FAERS Safety Report 5268565-8 (Version None)
Quarter: 2007Q1

REPORT INFORMATION
  Report Type: 
  Country: None (occurrence: None)
  Receive Date: 20070314
  Receipt Date: 20070306
  Transmission Date: 20070707
  Serious: Yes (Hospitalization, Other)
  Sender: FDA-Public Use
  Company Number: 163-21880-06111283

PATIENT
  Age: 77 Year
  Sex: Female

DRUGS (14)
  1. REVLIMID [Suspect]
     Indication: MYELODYSPLASTIC SYNDROME
     Dosage: 10 MG, 1 IN 1 D, ORAL
     Route: 048
     Dates: start: 20060918, end: 20061116
  2. BENZONATE (BENXONATATE) [Concomitant]
  3. CALCIUM CARBONATE (CALCIUM CARBONATE) [Concomitant]
  4. CENTRUM SILVER (CENTRUM SILVER) (TABLETS) [Concomitant]
  5. LUTEIN (XANTOFYL ) (CAPULES) [Concomitant]
  6. PROCRIT [Concomitant]
  7. VITAMIN B12 [Concomitant]
  8. ASPIRIN [Concomitant]
  9. OCUVITE (OCUVIE) [Concomitant]
  10. CALCIUM (CALCIUM) [Concomitant]
  11. COMPAZINE [Concomitant]
  12. SYNTHROID [Concomitant]
  13. NEULASTA [Concomitant]
  14. OCUVITE VITAMIN (OCUVITE) (TABLETS) [Concomitant]

REACTIONS (8)
  - ASTHENIA [None]
  - CHEST PAIN [None]
  - DYSPNOEA [None]
  - NEUROPATHY [None]
  - PULMONARY EMBOLISM [None]
  - RASH MACULO-PAPULAR [None]
  - RASH PRURITIC [None]
  - THROMBOCYTHAEMIA [None]
